FAERS Safety Report 9744532 (Version 3)
Quarter: 2014Q1

REPORT INFORMATION
  Report Type: Spontaneous
  Country: PL (occurrence: PL)
  Receive Date: 20131210
  Receipt Date: 20140131
  Transmission Date: 20141002
  Serious: Yes (Death, Other)
  Sender: FDA-Public Use
  Company Number: PL-GILEAD-2013-0089354

PATIENT
  Sex: Female

DRUGS (1)
  1. AMBRISENTAN [Suspect]
     Indication: PULMONARY ARTERIAL HYPERTENSION
     Dosage: 10MG UNKNOWN
     Route: 065
     Dates: start: 20130722, end: 20131123

REACTIONS (2)
  - Pulmonary hypertension [Fatal]
  - Organ failure [Fatal]
